FAERS Safety Report 4728937-4 (Version None)
Quarter: 2005Q3

REPORT INFORMATION
  Report Type: 
  Country: None (occurrence: None)
  Receive Date: 20050729
  Receipt Date: 20041104
  Transmission Date: 20060218
  Serious: No
  Sender: FDA-Public Use
  Company Number: US-GLAXOSMITHKLINE-A0532706A

PATIENT
  Age: 33 Year
  Sex: Female

DRUGS (22)
  1. IMITREX [Suspect]
     Indication: MIGRAINE
     Dosage: 100MG PER DAY
     Route: 048
     Dates: start: 20000101
  2. PREDNISONE [Concomitant]
  3. ARAVA [Concomitant]
  4. PLAQUENIL [Concomitant]
  5. ZITHROMAX [Concomitant]
  6. NYSTATIN [Concomitant]
  7. PROTONIX [Concomitant]
  8. IMMUNE GLOBULIN INTRAVENOUS (HUMAN) [Concomitant]
     Route: 042
  9. RITUXIMAB [Concomitant]
  10. ZOMETA [Concomitant]
  11. MULTI-VITAMIN [Concomitant]
  12. CALCIUM GLUCONATE [Concomitant]
  13. VITAMIN D [Concomitant]
  14. OXYCONTIN [Concomitant]
  15. DIAZEPAM [Concomitant]
  16. NEURONTIN [Concomitant]
  17. DHEA [Concomitant]
  18. DOCUSATE [Concomitant]
  19. ADVIL [Concomitant]
  20. TYLENOL [Concomitant]
  21. IV BENADRYL [Concomitant]
  22. ETODOLAC [Concomitant]

REACTIONS (1)
  - DRUG INEFFECTIVE [None]
